FAERS Safety Report 16832038 (Version 1)
Quarter: 2019Q3

REPORT INFORMATION
  Report Type: Spontaneous
  Country: US (occurrence: US)
  Receive Date: 20190920
  Receipt Date: 20190920
  Transmission Date: 20191005
  Serious: Yes (Hospitalization, Other)
  Sender: FDA-Public Use
  Company Number: US-DRREDDYS-USA/USA/19/0114299

PATIENT
  Age: 73 Year
  Sex: Female
  Weight: 53.8 kg

DRUGS (1)
  1. HEPARIN SODIUM. [Suspect]
     Active Substance: HEPARIN SODIUM
     Indication: THROMBOSIS PROPHYLAXIS
     Dosage: TOTAL OF SEVEN DOSES OF 5000 UNITS OF SC UFH
     Route: 058

REACTIONS (5)
  - Ecchymosis [Unknown]
  - Injection site reaction [Unknown]
  - Haemorrhage [Unknown]
  - Activated partial thromboplastin time prolonged [Recovered/Resolved]
  - Extradural haematoma [Unknown]
